FAERS Safety Report 14304575 (Version 1)
Quarter: 2017Q4

REPORT INFORMATION
  Report Type: Spontaneous
  Country: JP (occurrence: JP)
  Receive Date: 20171219
  Receipt Date: 20171219
  Transmission Date: 20180321
  Serious: Yes (Other)
  Sender: FDA-Public Use
  Company Number: JP-OTSUKA-006054

PATIENT
  Age: 42 Year
  Sex: Male

DRUGS (20)
  1. ZESULAN [Concomitant]
     Active Substance: MEQUITAZINE
     Indication: URTICARIA
     Dosage: 3 MG, BID
     Route: 048
     Dates: start: 20070330
  2. SILECE [Concomitant]
     Active Substance: FLUNITRAZEPAM
     Indication: INSOMNIA
     Dosage: 3 MG, QD
     Route: 048
     Dates: start: 20061215
  3. NEOMALLERMIN-TR [Concomitant]
     Active Substance: DEXCHLORPHENIRAMINE MALEATE
     Indication: URTICARIA
     Dosage: 6 MG, QD
     Route: 048
     Dates: start: 20050908
  4. ABILIFY [Suspect]
     Active Substance: ARIPIPRAZOLE
     Dosage: 18 MG, QD
     Route: 048
     Dates: start: 20081025, end: 20090227
  5. TRAZODONE [Concomitant]
     Active Substance: TRAZODONE HYDROCHLORIDE
     Indication: DEPRESSION
     Dosage: 50 MG, QD
     Route: 048
     Dates: start: 20080411, end: 20080807
  6. TRAZODONE HYDROCHLORIDE. [Concomitant]
     Active Substance: TRAZODONE HYDROCHLORIDE
     Dosage: UNK
     Dates: start: 20080411
  7. LULLAN [Concomitant]
     Active Substance: PEROSPIRONE HYDROCHLORIDE
     Dosage: FORM-TABS
     Dates: start: 20061027
  8. ABILIFY [Suspect]
     Active Substance: ARIPIPRAZOLE
     Dosage: 12 MG, BID
     Route: 048
     Dates: start: 20090228, end: 20090319
  9. ABILIFY [Suspect]
     Active Substance: ARIPIPRAZOLE
     Dosage: 6 MG, QD
     Route: 048
     Dates: start: 20090328, end: 20090403
  10. LULIAN [Concomitant]
     Indication: PERSECUTORY DELUSION
  11. TRAZODONE [Concomitant]
     Active Substance: TRAZODONE HYDROCHLORIDE
     Dosage: 25 MG, BID
     Route: 048
     Dates: start: 20080808
  12. CEREKINON [Concomitant]
     Active Substance: TRIMEBUTINE
     Indication: IRRITABLE BOWEL SYNDROME
     Dosage: 100 MG, TID
     Route: 048
     Dates: start: 20070428
  13. ABILIFY [Suspect]
     Active Substance: ARIPIPRAZOLE
     Indication: ANXIETY
     Dosage: 6 MG, QD
     Route: 048
     Dates: start: 20080725, end: 20081010
  14. FLUNITRAZEPAM [Concomitant]
     Active Substance: FLUNITRAZEPAM
     Dosage: FORM-TABS
     Dates: start: 20061215
  15. ABILIFY [Suspect]
     Active Substance: ARIPIPRAZOLE
     Indication: PERSECUTORY DELUSION
     Dosage: 12 MG, QD
     Route: 048
     Dates: start: 20081011, end: 20081024
  16. ABILIFY [Suspect]
     Active Substance: ARIPIPRAZOLE
     Dosage: 6 MG, BID
     Route: 048
     Dates: start: 20090320, end: 20090327
  17. LULIAN [Concomitant]
     Indication: ANXIETY
     Dosage: 16 MG, QD
     Route: 048
     Dates: start: 20061027
  18. WYPAX [Concomitant]
     Active Substance: LORAZEPAM
     Indication: ANXIETY
     Dosage: 1 MG, TID
     Route: 048
     Dates: start: 20070831
  19. ABILIFY [Suspect]
     Active Substance: ARIPIPRAZOLE
     Dosage: 3 MG, QD
     Route: 048
     Dates: start: 20090404
  20. LORAZEPAM. [Concomitant]
     Active Substance: LORAZEPAM
     Dosage: FORM-TABS
     Dates: start: 20070831

REACTIONS (1)
  - Visual acuity reduced [Recovering/Resolving]

NARRATIVE: CASE EVENT DATE: 200902
